FAERS Safety Report 5417302-2 (Version None)
Quarter: 2007Q3

REPORT INFORMATION
  Report Type: 
  Country: None (occurrence: None)
  Receive Date: 20070814
  Receipt Date: 20070803
  Transmission Date: 20080115
  Serious: Yes (Hospitalization, Other)
  Sender: FDA-Public Use
  Company Number: 013943

PATIENT
  Age: 19 Year
  Sex: Male
  Weight: 77.1 kg

DRUGS (2)
  1. CLARAVIS [Suspect]
     Indication: ACNE
     Dosage: 80 MG, QD, ORAL; 60 MG, QD, ORAL
     Route: 048
     Dates: end: 20070201
  2. CLARAVIS [Suspect]
     Indication: ACNE
     Dosage: 80 MG, QD, ORAL; 60 MG, QD, ORAL
     Route: 048
     Dates: start: 20070201, end: 20070701

REACTIONS (6)
  - ANGER [None]
  - FALSE POSITIVE TUBERCULOSIS TEST [None]
  - HEPATIC ENZYME INCREASED [None]
  - HYPERTENSION [None]
  - MOOD SWINGS [None]
  - PANCREATITIS [None]
